FAERS Safety Report 10266181 (Version 1)
Quarter: 2014Q2

REPORT INFORMATION
  Report Type: Spontaneous
  Country: FR (occurrence: FR)
  Receive Date: 20140627
  Receipt Date: 20140627
  Transmission Date: 20141212
  Serious: Yes (Other)
  Sender: FDA-Public Use
  Company Number: FR-ABBVIE-14P-056-1250156-00

PATIENT
  Age: 20 Year
  Sex: Female

DRUGS (1)
  1. HUMIRA [Suspect]
     Indication: CROHN^S DISEASE
     Route: 058
     Dates: start: 20120208, end: 20130527

REACTIONS (4)
  - Depression [Recovered/Resolved]
  - Alopecia [Recovered/Resolved]
  - Rash [Recovered/Resolved]
  - Sinusitis [Recovered/Resolved]
